FAERS Safety Report 5112420-0 (Version None)
Quarter: 2006Q3

REPORT INFORMATION
  Report Type: 
  Country: None (occurrence: None)
  Receive Date: 20060922
  Receipt Date: 20060720
  Transmission Date: 20061208
  Serious: No
  Sender: FDA-Public Use
  Company Number: US-GLAXOSMITHKLINE-A0612937A

PATIENT
  Age: 37 Year
  Sex: Female

DRUGS (2)
  1. ABREVA [Suspect]
     Route: 061
     Dates: start: 20060719
  2. CLOBETASOL PROPIONATE [Concomitant]

REACTIONS (2)
  - APPLICATION SITE PARAESTHESIA [None]
  - APPLICATION SITE WARMTH [None]
